FAERS Safety Report 6825826-6 (Version None)
Quarter: 2010Q3

REPORT INFORMATION
  Report Type: 
  Country: None (occurrence: None)
  Receive Date: 20100708
  Receipt Date: 20100708
  Transmission Date: 20110219
  Serious: No
  Sender: FDA-Public Use
  Company Number: None

PATIENT
  Age: 24 Year
  Sex: Female
  Weight: 53.978 kg

DRUGS (1)
  1. TRINESSA 1 P.O. QD - NORGESTRIMATE/ETHINYL ESTRADIOL WATSON [Suspect]
     Indication: CONTRACEPTION
     Dosage: 1 P.O. QD P.O.
     Route: 048
     Dates: start: 20100501, end: 20100601

REACTIONS (2)
  - METRORRHAGIA [None]
  - PRODUCT SUBSTITUTION ISSUE [None]
